FAERS Safety Report 8841676 (Version 1)
Quarter: 2012Q4

REPORT INFORMATION
  Report Type: 
  Country: US (occurrence: US)
  Receive Date: 20121015
  Receipt Date: 20121015
  Transmission Date: 20130627
  Serious: Yes (Other)
  Sender: FDA-Public Use
  Company Number: US-PFIZER INC-2012254916

PATIENT
  Age: 65 Year
  Sex: Female
  Weight: 104 kg

DRUGS (7)
  1. LIPITOR [Suspect]
     Indication: BLOOD CHOLESTEROL INCREASED
     Dosage: 10 mg, daily
     Route: 048
  2. ALDACTONE [Suspect]
     Indication: OEDEMA PERIPHERAL
     Dosage: 25 mg, 2x/day
     Route: 048
  3. INSULIN GLULISINE [Concomitant]
     Indication: DIABETES MELLITUS
     Dosage: 20 IU, 3x/day
     Route: 058
  4. LANTUS [Concomitant]
     Indication: DIABETES MELLITUS
     Dosage: 100 IU, daily at night
     Route: 058
  5. DIOVAN (VALSARTAN) [Concomitant]
     Indication: HYPERTENSION
     Dosage: 320 mg, daily
     Route: 048
  6. LASIX [Concomitant]
     Indication: OEDEMA PERIPHERAL
     Dosage: 80 mg, daily
     Route: 048
  7. POTASSIUM [Concomitant]
     Indication: ELECTROLYTE SUBSTITUTION THERAPY
     Dosage: 10 mg, 2x/day
     Route: 048

REACTIONS (2)
  - Renal failure chronic [Unknown]
  - Gout [Unknown]
